FAERS Safety Report 15494100 (Version 1)
Quarter: 2018Q4

REPORT INFORMATION
  Report Type: Spontaneous
  Country: US (occurrence: US)
  Receive Date: 20181005
  Receipt Date: 20181005
  Transmission Date: 20190205
  Serious: Yes (Life-Threatening)
  Sender: FDA-Public Use
  Company Number: None

PATIENT
  Age: 79 Year
  Sex: Male
  Weight: 103 kg

DRUGS (10)
  1. HEPARIN [Suspect]
     Active Substance: HEPARIN SODIUM
     Indication: DEEP VEIN THROMBOSIS
     Dosage: ?          OTHER FREQUENCY:CONTINUOUS IV;?
     Route: 041
     Dates: start: 20180929, end: 20180930
  2. LEVOTHYROXINE 75 MCG [Concomitant]
  3. KEPPRA [Concomitant]
     Active Substance: LEVETIRACETAM
  4. MIDODRINE 10 MG [Concomitant]
  5. HEPARIN [Suspect]
     Active Substance: HEPARIN SODIUM
     Indication: ATRIAL FIBRILLATION
     Dosage: ?          OTHER FREQUENCY:CONTINUOUS IV;?
     Route: 041
     Dates: start: 20180929, end: 20180930
  6. MODAFINIL 100 MG [Concomitant]
  7. ASPIRIN 81 MG [Concomitant]
     Active Substance: ASPIRIN
  8. ATORVASTATIN 80 MG [Concomitant]
     Active Substance: ATORVASTATIN
  9. FERRIC GLUCONATE 125 MG [Concomitant]
  10. FLAGYL [Concomitant]
     Active Substance: METRONIDAZOLE\METRONIDAZOLE HYDROCHLORIDE

REACTIONS (2)
  - Drug level below therapeutic [None]
  - Device issue [None]

NARRATIVE: CASE EVENT DATE: 20180930
